FAERS Safety Report 25690922 (Version 1)
Quarter: 2025Q3

REPORT INFORMATION
  Report Type: Report from Study
  Country: US (occurrence: US)
  Receive Date: 20250818
  Receipt Date: 20250818
  Transmission Date: 20251021
  Serious: Yes (Hospitalization)
  Sender: PFIZER
  Company Number: US-PFIZER INC-202500163009

PATIENT
  Age: 69 Year
  Sex: Female

DRUGS (9)
  1. BRAFTOVI [Suspect]
     Active Substance: ENCORAFENIB
     Dosage: TAKE 450MG (6 TABLETS) BY MOUTH DAILY
     Route: 048
     Dates: start: 20250708, end: 20250715
  2. MEKTOVI [Suspect]
     Active Substance: BINIMETINIB
     Dosage: TAKE 45MG (3 TABLETS) BY MOUTH TWICE A DAY. 90MG PER DAY
     Route: 048
     Dates: start: 20250708, end: 20250715
  3. BIOTIN [Concomitant]
     Active Substance: BIOTIN
  4. CALCIUM + MAGNESIUM + ZINK [Concomitant]
  5. FISH OIL [Concomitant]
     Active Substance: FISH OIL
  6. IRON [Concomitant]
     Active Substance: IRON
  7. VITAMIN B12 [Concomitant]
     Active Substance: CYANOCOBALAMIN
  8. VITAMIN D NOS [Concomitant]
     Active Substance: CHOLECALCIFEROL\ERGOCALCIFEROL
  9. VITAMIN E [Concomitant]
     Active Substance: .ALPHA.-TOCOPHEROL

REACTIONS (3)
  - Dialysis [Unknown]
  - Fatigue [Unknown]
  - Diarrhoea [Unknown]
